FAERS Safety Report 13374219 (Version 1)
Quarter: 2017Q1

REPORT INFORMATION
  Report Type: Spontaneous
  Country: US (occurrence: US)
  Receive Date: 20170327
  Receipt Date: 20170327
  Transmission Date: 20170429
  Serious: Yes (Hospitalization)
  Sender: FDA-Public Use
  Company Number: None

PATIENT
  Age: 82 Year
  Sex: Female

DRUGS (7)
  1. WARFARIN [Concomitant]
     Active Substance: WARFARIN
  2. METOPROLOL TARTRATE. [Concomitant]
     Active Substance: METOPROLOL TARTRATE
  3. TACROLIMUS 0.5MG [Suspect]
     Active Substance: TACROLIMUS
     Indication: LIVER TRANSPLANT
     Route: 048
     Dates: start: 20151204
  4. CENTRUM [Concomitant]
     Active Substance: VITAMINS
  5. DIGOXIN. [Concomitant]
     Active Substance: DIGOXIN
  6. FERROUS [Concomitant]
     Active Substance: IRON
  7. OSCAL [Concomitant]
     Active Substance: CALCIUM CARBONATE

REACTIONS (1)
  - Malaise [None]
